FAERS Safety Report 5509152-3 (Version None)
Quarter: 2007Q4

REPORT INFORMATION
  Report Type: 
  Country: None (occurrence: None)
  Receive Date: 20071031
  Receipt Date: 20070628
  Transmission Date: 20080405
  Serious: No
  Sender: FDA-Public Use
  Company Number: 2007PV033076

PATIENT
  Age: 60 Year
  Sex: Male

DRUGS (5)
  1. SYMLIN [Suspect]
     Indication: DRUG USE FOR UNKNOWN INDICATION
     Dosage: 60 MCG; TID; SC
     Route: 058
     Dates: start: 20070627
  2. GLUCOPHAGE [Concomitant]
  3. AVANDIA [Concomitant]
  4. GLIPIZIDE [Concomitant]
  5. BYETTA [Concomitant]

REACTIONS (1)
  - NAUSEA [None]
